FAERS Safety Report 7189940-0 (Version None)
Quarter: 2010Q4

REPORT INFORMATION
  Report Type: 
  Country: None (occurrence: None)
  Receive Date: 20101223
  Receipt Date: 20101208
  Transmission Date: 20110411
  Serious: Yes (Hospitalization)
  Sender: FDA-Public Use
  Company Number: US-CELGENEUS-163-20785-10110058

PATIENT
  Sex: Female

DRUGS (2)
  1. THALOMID [Suspect]
     Indication: MULTIPLE MYELOMA
     Route: 048
     Dates: start: 20100101, end: 20100501
  2. THALOMID [Suspect]
     Route: 048
     Dates: start: 20100201

REACTIONS (3)
  - FULL BLOOD COUNT DECREASED [None]
  - HERPES ZOSTER OPHTHALMIC [None]
  - MULTIPLE MYELOMA [None]
